FAERS Safety Report 7208131-8 (Version None)
Quarter: 2010Q4

REPORT INFORMATION
  Report Type: 
  Country: None (occurrence: None)
  Receive Date: 20101230
  Receipt Date: 20101230
  Transmission Date: 20110411
  Serious: No
  Sender: FDA-Public Use
  Company Number: None

PATIENT
  Sex: Female

DRUGS (2)
  1. DEPAKOTE [Suspect]
     Indication: EPILEPSY
     Dates: start: 20080901, end: 20081101
  2. DEPAKOTE [Suspect]

REACTIONS (3)
  - CONVULSION [None]
  - MALAISE [None]
  - TREMOR [None]
